FAERS Safety Report 4825528-1 (Version None)
Quarter: 2005Q4

REPORT INFORMATION
  Report Type: 
  Country: None (occurrence: None)
  Receive Date: 20051111
  Receipt Date: 20050809
  Transmission Date: 20060501
  Serious: No
  Sender: FDA-Public Use
  Company Number: US-GLAXOSMITHKLINE-A0569540A

PATIENT
  Age: 71 Year
  Sex: Male

DRUGS (4)
  1. AVODART [Suspect]
     Indication: BENIGN PROSTATIC HYPERPLASIA
     Dosage: .5MG PER DAY
     Route: 048
     Dates: start: 20050701, end: 20050709
  2. AZOPT [Concomitant]
  3. TRAVATAN [Concomitant]
  4. TRAZODONE HCL [Concomitant]

REACTIONS (6)
  - ABDOMINAL PAIN UPPER [None]
  - ECZEMA [None]
  - NAUSEA [None]
  - SKIN ULCER [None]
  - URINE ODOUR ABNORMAL [None]
  - VOMITING [None]
